FAERS Safety Report 25118075 (Version 1)
Quarter: 2025Q1

REPORT INFORMATION
  Report Type: Spontaneous
  Country: HU (occurrence: HU)
  Receive Date: 20250325
  Receipt Date: 20250325
  Transmission Date: 20250408
  Serious: Yes (Other)
  Sender: ROCHE
  Company Number: HU-ROCHE-10000236167

PATIENT
  Sex: Male

DRUGS (1)
  1. TAMIFLU [Suspect]
     Active Substance: OSELTAMIVIR PHOSPHATE
     Indication: Product used for unknown indication
     Route: 065

REACTIONS (6)
  - Haematemesis [Unknown]
  - Pyrexia [Unknown]
  - Dehydration [Unknown]
  - Ear pain [Unknown]
  - Deafness [Unknown]
  - Vascular rupture [Unknown]
